FAERS Safety Report 9902486 (Version 2)
Quarter: 2014Q4

REPORT INFORMATION
  Report Type: Spontaneous
  Country: FR (occurrence: FR)
  Receive Date: 20140217
  Receipt Date: 20141219
  Transmission Date: 20150529
  Serious: Yes (Hospitalization, Other)
  Sender: FDA-Public Use
  Company Number: FR-ELI_LILLY_AND_COMPANY-FR201402004430

PATIENT
  Age: 53 Year
  Sex: Male

DRUGS (4)
  1. PEMETREXED [Suspect]
     Active Substance: PEMETREXED
     Indication: METASTASES TO THE MEDIASTINUM
  2. PEMETREXED [Suspect]
     Active Substance: PEMETREXED
     Indication: METASTASES TO LUNG
     Dosage: UNK
     Route: 065
     Dates: start: 200704
  3. PEMETREXED [Suspect]
     Active Substance: PEMETREXED
     Indication: METASTASES TO BONE
     Dosage: UNK UNK, OTHER
     Route: 065
     Dates: start: 2005
  4. FOLINIC ACID [Concomitant]
     Active Substance: LEUCOVORIN
     Indication: SUPPLEMENTATION THERAPY
     Dosage: UNK
     Route: 065

REACTIONS (6)
  - Renal tubular necrosis [Unknown]
  - Chronic kidney disease [Not Recovered/Not Resolved]
  - Metabolic acidosis [Unknown]
  - Acute kidney injury [Unknown]
  - Kidney fibrosis [Unknown]
  - Haematotoxicity [Unknown]

NARRATIVE: CASE EVENT DATE: 2005
